FAERS Safety Report 20232487 (Version 1)
Quarter: 2021Q4

REPORT INFORMATION
  Report Type: Spontaneous
  Country: BR (occurrence: BR)
  Receive Date: 20211227
  Receipt Date: 20211227
  Transmission Date: 20220303
  Serious: Yes (Other)
  Sender: FDA-Public Use
  Company Number: BR-ALLERGAN-2143794US

PATIENT
  Sex: Female

DRUGS (1)
  1. CARBOXYMETHYLCELLULOSE SODIUM [Suspect]
     Active Substance: CARBOXYMETHYLCELLULOSE SODIUM
     Indication: Product used for unknown indication

REACTIONS (6)
  - Ulcerative keratitis [Unknown]
  - Eye disorder [Unknown]
  - Eye irritation [Unknown]
  - Eye pain [Unknown]
  - Eye swelling [Unknown]
  - Ocular hyperaemia [Unknown]
